FAERS Safety Report 4653281-3 (Version None)
Quarter: 2005Q2

REPORT INFORMATION
  Report Type: 
  Country: None (occurrence: None)
  Receive Date: 20050503
  Receipt Date: 20050420
  Transmission Date: 20051028
  Serious: Yes (Life-Threatening, Hospitalization)
  Sender: FDA-Public Use
  Company Number: 2005062096

PATIENT
  Age: 34 Year
  Sex: Female

DRUGS (6)
  1. NORVASC [Suspect]
     Indication: ILL-DEFINED DISORDER
     Dosage: 55 MG, ORAL
     Route: 048
     Dates: start: 20050416, end: 20050416
  2. CARDENALIN (DOXAZOSIN) [Suspect]
     Indication: ILL-DEFINED DISORDER
     Dosage: 22 MG, ORAL
     Route: 048
     Dates: start: 20050416, end: 20050416
  3. ALDACTONE [Suspect]
     Indication: ILL-DEFINED DISORDER
     Dosage: 275 MG, ORAL
     Route: 048
     Dates: start: 20050416, end: 20050416
  4. FUROSEMIDE [Suspect]
     Indication: ILL-DEFINED DISORDER
     Dosage: 11 TABLETS, ORAL
     Route: 048
     Dates: start: 20050416, end: 20050416
  5. CANDESARTAN CILEXETIL (CANDESARTAN CILEXETIL) [Suspect]
     Indication: ILL-DEFINED DISORDER
     Dosage: (8 MG, UNKNOWN), ORAL
     Route: 048
     Dates: start: 20050416, end: 20050416
  6. PIOGLITAZONE HCL [Suspect]
     Indication: ILL-DEFINED DISORDER
     Dosage: (15 MG, UNKNOWN), ORAL
     Route: 048
     Dates: start: 20050416, end: 20050416

REACTIONS (6)
  - EMOTIONAL DISORDER [None]
  - OLIGURIA [None]
  - OVERDOSE [None]
  - RENAL FAILURE ACUTE [None]
  - SHOCK [None]
  - SUICIDE ATTEMPT [None]
